FAERS Safety Report 9950567 (Version 1)
Quarter: 2014Q1

REPORT INFORMATION
  Report Type: Report from Study
  Country: BR (occurrence: BR)
  Receive Date: 20140304
  Receipt Date: 20140304
  Transmission Date: 20141002
  Serious: Yes (Other)
  Sender: FDA-Public Use
  Company Number: PHHY2014BR025263

PATIENT
  Sex: Female
  Weight: 90 kg

DRUGS (10)
  1. GALVUS [Suspect]
     Indication: DIABETES MELLITUS
     Dosage: 2 DF, A DAY
  2. EXELON PATCH [Suspect]
     Indication: MEMORY IMPAIRMENT
     Dosage: 4.6 MG (5 CM) EACH 24 HOURS
     Route: 062
  3. EXELON PATCH [Suspect]
     Dosage: 9.5 MG (10 CM) EACH 24 HOURS
     Route: 062
  4. EXELON PATCH [Suspect]
     Dosage: 4.6 MG (5 CM) EACH 24 HOURS
     Route: 062
  5. EFEXOR [Suspect]
     Indication: DEPRESSIVE SYMPTOM
     Dosage: 1 DF, IN MORNING
  6. ARADOIS [Concomitant]
     Indication: BLOOD PRESSURE INCREASED
     Dosage: 1 DF, A DAY, (50 MG)
     Dates: start: 2012
  7. ARTRODAR [Concomitant]
     Indication: OSTEOARTHRITIS
     Dosage: 1 DF, A DAY, (50 MG)
     Dates: start: 2012
  8. OSCAL [Concomitant]
     Indication: BLOOD CALCIUM DECREASED
     Dosage: 1 DF, A DAY
     Dates: start: 2012
  9. ROSUCOR [Concomitant]
     Indication: CARDIAC DISORDER
     Dosage: 1 DF, A DAY
     Dates: start: 2012
  10. AAS [Concomitant]
     Indication: ANEURYSM
     Dosage: 1 DF, A DAY, (100 MG)

REACTIONS (3)
  - Visual impairment [Not Recovered/Not Resolved]
  - Weight increased [Not Recovered/Not Resolved]
  - Body height decreased [Not Recovered/Not Resolved]
